FAERS Safety Report 7000971-3 (Version None)
Quarter: 2010Q3

REPORT INFORMATION
  Report Type: 
  Country: None (occurrence: None)
  Receive Date: 20100920
  Receipt Date: 20100331
  Transmission Date: 20110219
  Serious: Yes (Hospitalization)
  Sender: FDA-Public Use
  Company Number: US-ASTRAZENECA-2009SE15634

PATIENT

DRUGS (4)
  1. SEROQUEL [Suspect]
     Route: 048
     Dates: start: 20060101
  2. ALTACE [Concomitant]
     Dosage: ONCE DAILY
  3. LEVAMIN [Concomitant]
     Dosage: 40 UNITS A DAY
  4. NOVOLOG [Concomitant]
     Dosage: 4 - 6 X /DAY

REACTIONS (1)
  - DIABETES MELLITUS [None]
